FAERS Safety Report 14863288 (Version 3)
Quarter: 2018Q2

REPORT INFORMATION
  Report Type: Spontaneous
  Country: IE (occurrence: IE)
  Receive Date: 20180508
  Receipt Date: 20180611
  Transmission Date: 20180711
  Serious: Yes (Other)
  Sender: FDA-Public Use
  Company Number: IE-MYLANLABS-2018M1029644

PATIENT
  Age: 10 Year
  Sex: Female
  Weight: 36.4 kg

DRUGS (9)
  1. KLACID [Suspect]
     Active Substance: CLARITHROMYCIN
     Dosage: 250 ML, UNK
     Route: 048
     Dates: start: 20180202, end: 20180209
  2. SALAMOL                            /00139501/ [Concomitant]
     Indication: PRODUCT USED FOR UNKNOWN INDICATION
     Dosage: UNK
  3. VENTOLIN [Concomitant]
     Active Substance: ALBUTEROL SULFATE
     Indication: PRODUCT USED FOR UNKNOWN INDICATION
     Dosage: 400 ?G, UNK
  4. MONTELUKAST [Concomitant]
     Active Substance: MONTELUKAST SODIUM
     Indication: COUGH
     Dosage: 5 MG, UNK
  5. BECOTIDE [Concomitant]
     Active Substance: BECLOMETHASONE DIPROPIONATE
     Dosage: 400 ?G, UNK
     Dates: start: 20171219
  6. MUCOCLEAR                          /00075401/ [Concomitant]
     Indication: PRODUCT USED FOR UNKNOWN INDICATION
     Dosage: 4 ML, UNK (3% NACL)
  7. AVAMYS [Concomitant]
     Active Substance: FLUTICASONE FUROATE
     Indication: COUGH
     Dosage: 27.5 ?G, UNK (BEING TAKEN TWO WEEKS ON, TWO WEEKS OFF SINCE OCT/2017)
  8. KLACID [Suspect]
     Active Substance: CLARITHROMYCIN
     Indication: LOWER RESPIRATORY TRACT INFECTION
     Dosage: 7.5 ML, UNK
     Route: 048
     Dates: start: 20180202, end: 20180209
  9. BECOTIDE [Concomitant]
     Active Substance: BECLOMETHASONE DIPROPIONATE
     Indication: COUGH
     Dosage: DOSE INCREASED FROM 200 MICRO GRAM TO 400 MICRO GRAM ON 19/DEC/2017

REACTIONS (4)
  - Pain in extremity [Recovered/Resolved]
  - Mobility decreased [Recovered/Resolved]
  - Tendonitis [Recovered/Resolved]
  - Muscle disorder [Recovered/Resolved]

NARRATIVE: CASE EVENT DATE: 20180206
